FAERS Safety Report 6014929-4 (Version None)
Quarter: 2008Q4

REPORT INFORMATION
  Report Type: 
  Country: None (occurrence: None)
  Receive Date: 20081219
  Receipt Date: 20081204
  Transmission Date: 20090506
  Serious: Yes (Hospitalization)
  Sender: FDA-Public Use
  Company Number: CA-JNJCH-2008056354

PATIENT
  Age: 66 Year
  Sex: Female
  Weight: 49.9 kg

DRUGS (5)
  1. BENYLIN ALL-IN-ONE COLD + FLU NIGHT CAPLETS [Suspect]
     Indication: NASOPHARYNGITIS
     Dosage: TEXT:4 CAPLETS (2 IN AM AND 2  6-HOURS-LATER)
     Route: 048
  2. FOSAMAX [Concomitant]
     Indication: DRUG USE FOR UNKNOWN INDICATION
     Dosage: TEXT:UNSPECIFIED
     Route: 065
  3. EVISTA [Concomitant]
     Indication: DRUG USE FOR UNKNOWN INDICATION
     Dosage: TEXT:UNSPECIFIED
     Route: 065
  4. MULTI-VITAMINS [Concomitant]
     Indication: DRUG USE FOR UNKNOWN INDICATION
     Dosage: TEXT:UNSPECIFIED
     Route: 065
  5. CALCIUM [Concomitant]
     Indication: DRUG USE FOR UNKNOWN INDICATION
     Dosage: TEXT:UNSPECIFIED
     Route: 065

REACTIONS (5)
  - AMNESIA [None]
  - BACTERIAL INFECTION [None]
  - CONFUSIONAL STATE [None]
  - SOMNAMBULISM [None]
  - SOMNOLENCE [None]
